FAERS Safety Report 4417039-2 (Version None)
Quarter: 2004Q2

REPORT INFORMATION
  Report Type: 
  Country: None (occurrence: None)
  Receive Date: 20040629
  Receipt Date: 20031218
  Transmission Date: 20050107
  Serious: No
  Sender: FDA-Public Use
  Company Number: US061302

PATIENT
  Sex: Female

DRUGS (1)
  1. ARANESP [Suspect]
     Indication: RENAL FAILURE CHRONIC
     Dosage: 60 MCG, ONE TIME DOSE

REACTIONS (1)
  - HYPERTENSIVE CRISIS [None]
